FAERS Safety Report 8370612-1 (Version None)
Quarter: 2012Q2

REPORT INFORMATION
  Report Type: 
  Country: None (occurrence: None)
  Receive Date: 20120518
  Receipt Date: 20120508
  Transmission Date: 20120825
  Serious: Yes (Hospitalization)
  Sender: FDA-Public Use
  Company Number: US-ELI_LILLY_AND_COMPANY-US201205002020

PATIENT
  Sex: Female

DRUGS (2)
  1. HUMALOG MIX 75/25 [Suspect]
     Indication: BLOOD GLUCOSE INCREASED
  2. PLAVIX [Concomitant]

REACTIONS (3)
  - RASH [None]
  - PURPURA [None]
  - WHEEZING [None]
